FAERS Safety Report 5276359-2 (Version None)
Quarter: 2007Q1

REPORT INFORMATION
  Report Type: 
  Country: None (occurrence: None)
  Receive Date: 20070326
  Receipt Date: 20070314
  Transmission Date: 20070707
  Serious: Yes (Hospitalization)
  Sender: FDA-Public Use
  Company Number: FR-PFIZER INC-2007021816

PATIENT
  Age: 49 Year
  Sex: Female
  Weight: 56 kg

DRUGS (2)
  1. RELPAX [Suspect]
     Route: 048
     Dates: start: 20060916, end: 20060917
  2. DOSTINEX [Suspect]
     Indication: ADENOMA BENIGN
     Dosage: DAILY DOSE:.5MG-FREQ:INTERVAL: EVERY WEEK

REACTIONS (1)
  - CEREBROVASCULAR ACCIDENT [None]
